FAERS Safety Report 25879020 (Version 1)
Quarter: 2025Q4

REPORT INFORMATION
  Report Type: Spontaneous
  Country: US (occurrence: US)
  Receive Date: 20251003
  Receipt Date: 20251003
  Transmission Date: 20260117
  Serious: No
  Sender: PFIZER
  Company Number: US-PFIZER INC-202500194858

PATIENT
  Age: 72 Year
  Sex: Female

DRUGS (1)
  1. VELSIPITY [Suspect]
     Active Substance: ETRASIMOD ARGININE
     Indication: Colitis ulcerative

REACTIONS (14)
  - Cerebral disorder [Unknown]
  - Mental disorder [Unknown]
  - Weight decreased [Unknown]
  - Condition aggravated [Unknown]
  - Irritability [Unknown]
  - Nausea [Unknown]
  - Chest discomfort [Unknown]
  - Oropharyngeal pain [Unknown]
  - Blood pressure increased [Unknown]
  - Dry mouth [Unknown]
  - Somnolence [Unknown]
  - Headache [Unknown]
  - Abdominal pain upper [Unknown]
  - Dyspnoea [Recovering/Resolving]
